FAERS Safety Report 24806854 (Version 3)
Quarter: 2025Q1

REPORT INFORMATION
  Report Type: Spontaneous
  Country: US (occurrence: US)
  Receive Date: 20250104
  Receipt Date: 20250205
  Transmission Date: 20250408
  Serious: Yes (Hospitalization)
  Sender: SANOFI AVENTIS
  Company Number: US-SA-2025SA002298

PATIENT
  Age: 46 Year
  Sex: Female

DRUGS (1)
  1. DUPIXENT [Suspect]
     Active Substance: DUPILUMAB
     Indication: Eosinophilic oesophagitis
     Dosage: 300 MG, QW
     Route: 058
     Dates: start: 202411, end: 202501

REACTIONS (9)
  - Gastrointestinal infection [Unknown]
  - Increased need for sleep [Unknown]
  - Gait disturbance [Unknown]
  - Migraine [Unknown]
  - Influenza like illness [Unknown]
  - Pain [Unknown]
  - Dizziness [Unknown]
  - Myalgia [Unknown]
  - Vision blurred [Unknown]

NARRATIVE: CASE EVENT DATE: 20240101
